FAERS Safety Report 10063398 (Version 1)
Quarter: 2014Q2

REPORT INFORMATION
  Report Type: Report from Study
  Country: US (occurrence: US)
  Receive Date: 20140407
  Receipt Date: 20140407
  Transmission Date: 20141212
  Serious: Yes (Other)
  Sender: FDA-Public Use
  Company Number: US-ALEXION-A200800638

PATIENT
  Sex: Male

DRUGS (3)
  1. SOLIRIS [Suspect]
     Indication: PAROXYSMAL NOCTURNAL HAEMOGLOBINURIA
     Dosage: UNK
     Route: 042
  2. EPOGEN [Concomitant]
  3. PROCRIT                            /00909301/ [Concomitant]

REACTIONS (5)
  - Transfusion [Unknown]
  - Aplastic anaemia [Unknown]
  - Dyspnoea [Unknown]
  - Haemolysis [Unknown]
  - Fatigue [Unknown]
